FAERS Safety Report 22214408 (Version 1)
Quarter: 2023Q2

REPORT INFORMATION
  Report Type: Spontaneous
  Country: GB (occurrence: GB)
  Receive Date: 20230414
  Receipt Date: 20230414
  Transmission Date: 20230722
  Serious: Yes (Other)
  Sender: FDA-Public Use
  Company Number: None

PATIENT
  Age: 58 Year
  Sex: Male
  Weight: 132 kg

DRUGS (1)
  1. OXYCODONE HYDROCHLORIDE [Suspect]
     Active Substance: OXYCODONE HYDROCHLORIDE
     Indication: Ill-defined disorder
     Dosage: VARYS
     Route: 048
     Dates: start: 19980101

REACTIONS (2)
  - Tooth fracture [Recovered/Resolved with Sequelae]
  - Tooth erosion [Recovered/Resolved with Sequelae]

NARRATIVE: CASE EVENT DATE: 20140601
